FAERS Safety Report 11339748 (Version 1)
Quarter: 2015Q3

REPORT INFORMATION
  Report Type: Spontaneous
  Country: US (occurrence: US)
  Receive Date: 20150805
  Receipt Date: 20150805
  Transmission Date: 20151125
  Serious: No
  Sender: FDA-Public Use
  Company Number: US-ASTRAZENECA-2015SE73099

PATIENT
  Sex: Male
  Weight: 108.9 kg

DRUGS (7)
  1. MAGNESIUM [Concomitant]
     Active Substance: MAGNESIUM
     Indication: CARDIAC DISORDER
     Dosage: TWO TIMES A DAY
     Route: 048
     Dates: start: 201307
  2. SPIRONOLACTONE. [Concomitant]
     Active Substance: SPIRONOLACTONE
     Route: 048
     Dates: start: 201307
  3. MAGNESIUM [Concomitant]
     Active Substance: MAGNESIUM
     Indication: SUPPLEMENTATION THERAPY
     Dosage: TWO TIMES A DAY
     Route: 048
     Dates: start: 201307
  4. LISINOPRIL. [Suspect]
     Active Substance: LISINOPRIL
     Route: 048
     Dates: start: 201307
  5. CARVEDILOL. [Concomitant]
     Active Substance: CARVEDILOL
     Route: 048
     Dates: start: 201307
  6. MAGNESIUM [Concomitant]
     Active Substance: MAGNESIUM
     Indication: LUNG DISORDER
     Dosage: TWO TIMES A DAY
     Route: 048
     Dates: start: 201307
  7. TUDORZA PRESSAIR [Suspect]
     Active Substance: ACLIDINIUM BROMIDE
     Indication: CHRONIC OBSTRUCTIVE PULMONARY DISEASE
     Route: 055
     Dates: start: 201506

REACTIONS (4)
  - Eye infection [Unknown]
  - Pruritus [Unknown]
  - Eye injury [Unknown]
  - Vision blurred [Unknown]
